FAERS Safety Report 23690879 (Version 1)
Quarter: 2024Q2

REPORT INFORMATION
  Report Type: Spontaneous
  Country: US (occurrence: US)
  Receive Date: 20240401
  Receipt Date: 20240401
  Transmission Date: 20240716
  Serious: No
  Sender: FDA-Public Use
  Company Number: US-ABBVIE-5700943

PATIENT

DRUGS (1)
  1. SKYRIZI [Suspect]
     Active Substance: RISANKIZUMAB-RZAA
     Indication: Autoimmune disorder
     Route: 042

REACTIONS (4)
  - Immunodeficiency [Unknown]
  - Headache [Unknown]
  - Pain in extremity [Unknown]
  - Musculoskeletal stiffness [Unknown]
